FAERS Safety Report 6766811-2 (Version None)
Quarter: 2010Q2

REPORT INFORMATION
  Report Type: 
  Country: None (occurrence: None)
  Receive Date: 20100611
  Receipt Date: 20100601
  Transmission Date: 20101027
  Serious: Yes (Hospitalization, Other)
  Sender: FDA-Public Use
  Company Number: US-ELI_LILLY_AND_COMPANY-US201006001434

PATIENT
  Sex: Female

DRUGS (5)
  1. SYMBYAX [Suspect]
  2. REVLIMID [Concomitant]
     Indication: MULTIPLE MYELOMA
     Dosage: 25 MG, DAILY (1/D)
     Route: 048
     Dates: start: 20090416
  3. REVLIMID [Concomitant]
     Dosage: 10 MG, DAILY (1/D)
     Route: 048
  4. DEXAMETHASONE [Concomitant]
     Dosage: UNK, WEEKLY (1/W)
  5. VELCADE [Concomitant]

REACTIONS (10)
  - ANXIETY [None]
  - CONTUSION [None]
  - CONVULSION [None]
  - FACE INJURY [None]
  - FALL [None]
  - MOUTH INJURY [None]
  - MULTIPLE MYELOMA [None]
  - ORTHOSTATIC HYPOTENSION [None]
  - PANCYTOPENIA [None]
  - THROMBOCYTOPENIA [None]
